FAERS Safety Report 17940553 (Version 1)
Quarter: 2020Q2

REPORT INFORMATION
  Report Type: Spontaneous
  Country: FR (occurrence: FR)
  Receive Date: 20200625
  Receipt Date: 20200625
  Transmission Date: 20200714
  Serious: Yes (Hospitalization, Other)
  Sender: FDA-Public Use
  Company Number: FR-SA-2020SA159300

PATIENT

DRUGS (2)
  1. REPAGLINIDE. [Suspect]
     Active Substance: REPAGLINIDE
     Indication: TYPE 2 DIABETES MELLITUS
     Dosage: UNK (PRODUCT NOT ADMINISTERED)
     Route: 048
  2. RIFATER [Suspect]
     Active Substance: ISONIAZID\PYRAZINAMIDE\RIFAMPIN
     Indication: PRODUCT ADMINISTRATION ERROR
     Dosage: 4 DF, QD
     Route: 048
     Dates: start: 20200424, end: 20200424

REACTIONS (4)
  - Chromaturia [Recovered/Resolved]
  - Product administration error [Unknown]
  - Diabetes mellitus inadequate control [Recovered/Resolved]
  - Product preparation error [Unknown]

NARRATIVE: CASE EVENT DATE: 20200424
